FAERS Safety Report 6706841-X (Version None)
Quarter: 2010Q2

REPORT INFORMATION
  Report Type: 
  Country: None (occurrence: None)
  Receive Date: 20100503
  Receipt Date: 20100428
  Transmission Date: 20101027
  Serious: Yes (Hospitalization)
  Sender: FDA-Public Use
  Company Number: B0650681A

PATIENT
  Sex: Female

DRUGS (6)
  1. ACITRETIN [Suspect]
     Indication: PSORIASIS
     Route: 048
     Dates: start: 20100407, end: 20100418
  2. XALATAN [Concomitant]
     Route: 065
  3. CRESTOR [Concomitant]
  4. LEXOMIL [Concomitant]
  5. PROZAC [Concomitant]
  6. KESTIN [Concomitant]

REACTIONS (1)
  - IIIRD NERVE PARALYSIS [None]
